FAERS Safety Report 8879285 (Version 1)
Quarter: 2012Q4

REPORT INFORMATION
  Report Type: 
  Country: US (occurrence: US)
  Receive Date: 20121031
  Receipt Date: 20121031
  Transmission Date: 20130627
  Serious: Yes (Other)
  Sender: FDA-Public Use
  Company Number: US-ACTELION-A-NJ2012-60917

PATIENT
  Age: 45 Year
  Sex: Male

DRUGS (5)
  1. TRACLEER [Suspect]
     Indication: PULMONARY ARTERIAL HYPERTENSION
     Dosage: UNK
     Route: 048
     Dates: start: 200807
  2. ADCIRCA [Concomitant]
  3. COUMADIN [Concomitant]
  4. OXYGEN [Concomitant]
     Dosage: UNK
     Dates: start: 200807
  5. MORPHINE [Concomitant]

REACTIONS (9)
  - Cerebrovascular accident [Unknown]
  - Infection [Unknown]
  - Thrombosis [Unknown]
  - Fall [Unknown]
  - Blood glucose increased [Unknown]
  - Cough [Unknown]
  - Fluid retention [Unknown]
  - Dyspnoea [Unknown]
  - Abdominal discomfort [Unknown]
